FAERS Safety Report 4421882-3 (Version None)
Quarter: 2004Q3

REPORT INFORMATION
  Report Type: 
  Country: None (occurrence: None)
  Receive Date: 20040804
  Receipt Date: 20040722
  Transmission Date: 20050211
  Serious: Yes (Other)
  Sender: FDA-Public Use
  Company Number: 2004040264

PATIENT
  Age: 36 Year
  Sex: Male
  Weight: 88.4514 kg

DRUGS (2)
  1. NEURONTIN [Suspect]
     Indication: NEUROPATHY
     Dosage: 3200 MG, ORAL
     Route: 048
     Dates: start: 20040129
  2. ANTIHYPERTENSIVES (ANTIHYPERTENSIVES) [Concomitant]

REACTIONS (3)
  - DRUG DEPENDENCE [None]
  - DRUG WITHDRAWAL SYNDROME [None]
  - FEELING ABNORMAL [None]
